FAERS Safety Report 9191201 (Version 1)
Quarter: 2013Q1

REPORT INFORMATION
  Report Type: Spontaneous
  Country: US (occurrence: US)
  Receive Date: 20130326
  Receipt Date: 20130326
  Transmission Date: 20140127
  Serious: No
  Sender: FDA-Public Use
  Company Number: US-ASTRAZENECA-2006UW12954

PATIENT
  Age: 71 Year
  Sex: Female
  Weight: 52.2 kg

DRUGS (9)
  1. NEXIUM [Suspect]
     Indication: DYSPEPSIA
     Route: 048
  2. NEXIUM [Suspect]
     Indication: GASTROOESOPHAGEAL REFLUX DISEASE
     Route: 048
  3. NEXIUM [Suspect]
     Indication: DYSPEPSIA
     Route: 048
  4. NEXIUM [Suspect]
     Indication: GASTROOESOPHAGEAL REFLUX DISEASE
     Route: 048
  5. NEXIUM [Suspect]
     Indication: DYSPEPSIA
     Route: 048
  6. NEXIUM [Suspect]
     Indication: GASTROOESOPHAGEAL REFLUX DISEASE
     Route: 048
  7. PRILOSEC [Suspect]
     Indication: BARRETT^S OESOPHAGUS
     Route: 048
  8. LORAZEPAM [Concomitant]
     Indication: ANXIETY
  9. MIRTAZAPINE [Concomitant]
     Indication: DEPRESSION

REACTIONS (7)
  - Osteoporosis [Unknown]
  - Bone density decreased [Unknown]
  - Barrett^s oesophagus [Unknown]
  - Rheumatoid arthritis [Unknown]
  - Headache [Unknown]
  - Intentional drug misuse [Unknown]
  - Drug ineffective [Unknown]
